FAERS Safety Report 16285325 (Version 2)
Quarter: 2019Q3

REPORT INFORMATION
  Report Type: Spontaneous
  Country: US (occurrence: US)
  Receive Date: 20190508
  Receipt Date: 20190916
  Transmission Date: 20191004
  Serious: No
  Sender: FDA-Public Use
  Company Number: US-HTU-2019US018586

PATIENT
  Age: 72 Year
  Sex: Female

DRUGS (2)
  1. PREDNISONE. [Concomitant]
     Active Substance: PREDNISONE
  2. VALCHLOR [Suspect]
     Active Substance: MECHLORETHAMINE
     Indication: CUTANEOUS T-CELL LYMPHOMA
     Dosage: UNK, APPLY TWICE DAILY
     Route: 061
     Dates: start: 201902, end: 201904

REACTIONS (4)
  - Inappropriate schedule of product administration [Unknown]
  - Blister [Recovered/Resolved]
  - Erythema [Recovered/Resolved]
  - Fatigue [Unknown]

NARRATIVE: CASE EVENT DATE: 201902
